FAERS Safety Report 7630880-8 (Version None)
Quarter: 2011Q3

REPORT INFORMATION
  Report Type: 
  Country: None (occurrence: None)
  Receive Date: 20110724
  Receipt Date: 20110713
  Transmission Date: 20111222
  Serious: Yes (Other)
  Sender: FDA-Public Use
  Company Number: US-AMGEN-USASP2011035775

PATIENT
  Age: 31 Year
  Sex: Female

DRUGS (2)
  1. ENBREL [Suspect]
     Indication: RHEUMATOID ARTHRITIS
     Dosage: 50 MG, QWK
     Dates: start: 20071130, end: 20110130
  2. METHOTREXATE [Concomitant]
     Dosage: 1 MG, QWK
     Dates: start: 20060601

REACTIONS (8)
  - WHITE BLOOD CELL COUNT INCREASED [None]
  - SINUSITIS [None]
  - RED BLOOD CELL COUNT INCREASED [None]
  - INCREASED TENDENCY TO BRUISE [None]
  - MULTIPLE ALLERGIES [None]
  - STRESS [None]
  - PLATELET COUNT INCREASED [None]
  - RHEUMATOID ARTHRITIS [None]
